FAERS Safety Report 9015677 (Version 5)
Quarter: 2013Q3

REPORT INFORMATION
  Report Type: Spontaneous
  Country: CA (occurrence: CA)
  Receive Date: 20130116
  Receipt Date: 20130719
  Transmission Date: 20140515
  Serious: Yes (Other)
  Sender: FDA-Public Use
  Company Number: CA-ROCHE-1180328

PATIENT
  Age: 52 Year
  Sex: Male

DRUGS (9)
  1. XOLAIR [Suspect]
     Indication: ASTHMA
     Route: 058
     Dates: start: 20111202
  2. XOLAIR [Suspect]
     Route: 058
     Dates: start: 20130110
  3. XOLAIR [Suspect]
     Route: 065
     Dates: start: 20130613
  4. IMURAN [Suspect]
     Indication: PRODUCT USED FOR UNKNOWN INDICATION
     Route: 065
  5. SINGULAIR [Concomitant]
  6. PREDNISONE [Concomitant]
  7. PULMICORT [Concomitant]
  8. COMBIVENT [Concomitant]
  9. HUMIRA [Concomitant]

REACTIONS (11)
  - Crohn^s disease [Recovering/Resolving]
  - Abdominal pain upper [Unknown]
  - Dyspnoea [Unknown]
  - Chest discomfort [Unknown]
  - Cough [Not Recovered/Not Resolved]
  - Fatigue [Not Recovered/Not Resolved]
  - Arthralgia [Recovering/Resolving]
  - Hypersensitivity [Unknown]
  - Pain in extremity [Recovering/Resolving]
  - Local swelling [Unknown]
  - Embolism [Unknown]
